FAERS Safety Report 11896751 (Version 3)
Quarter: 2016Q1

REPORT INFORMATION
  Report Type: Report from Study
  Country: US (occurrence: US)
  Receive Date: 20160107
  Receipt Date: 20160127
  Transmission Date: 20160526
  Serious: Yes (Death, Hospitalization)
  Sender: FDA-Public Use
  Company Number: US-ACTELION-A-US2015-128655

PATIENT
  Age: 49 Year
  Sex: Male

DRUGS (3)
  1. TRACLEER [Suspect]
     Active Substance: BOSENTAN
     Indication: PORTOPULMONARY HYPERTENSION
     Dosage: UNK
     Route: 048
     Dates: end: 201601
  2. REMODULIN [Concomitant]
     Active Substance: TREPROSTINIL
     Dosage: 11.25 NG/KG, PER MIN
  3. SILDENAFIL. [Concomitant]
     Active Substance: SILDENAFIL

REACTIONS (12)
  - Disseminated intravascular coagulation [Fatal]
  - Flatulence [Unknown]
  - Fatigue [Unknown]
  - Infusion site swelling [Unknown]
  - Peptic ulcer [Unknown]
  - Haemorrhage [Unknown]
  - Somnolence [Unknown]
  - Diarrhoea [Unknown]
  - Dyspnoea [Unknown]
  - Infusion site pain [Unknown]
  - Multiple organ dysfunction syndrome [Fatal]
  - Vomiting [Unknown]

NARRATIVE: CASE EVENT DATE: 20151223
